FAERS Safety Report 6524402-2 (Version None)
Quarter: 2010Q1

REPORT INFORMATION
  Report Type: 
  Country: None (occurrence: None)
  Receive Date: 20100101
  Receipt Date: 20091217
  Transmission Date: 20100710
  Serious: Yes (Hospitalization, Other)
  Sender: FDA-Public Use
  Company Number: CHNY2007GB02543

PATIENT
  Age: 78 Year
  Sex: Female
  Weight: 44.9 kg

DRUGS (4)
  1. FERROUS SULFATE (NCH) [Suspect]
     Indication: IRON DEFICIENCY
     Route: 048
     Dates: start: 20040301, end: 20060301
  2. SINEMET [Interacting]
     Indication: PARKINSON'S DISEASE
     Dosage: 687.5 MG, QD
     Dates: start: 20040301
  3. ACETYLSALICYLIC ACID [Concomitant]
     Dosage: 75 MG, UNK
     Route: 048
  4. CITALOPRAM HYDROBROMIDE [Concomitant]
     Dosage: 20 MG, UNK
     Route: 048
     Dates: end: 20060223

REACTIONS (9)
  - BLOOD IRON DECREASED [None]
  - DEHYDRATION [None]
  - DRUG INTERACTION [None]
  - ESCHERICHIA BACTERAEMIA [None]
  - GENERAL PHYSICAL HEALTH DETERIORATION [None]
  - MOUTH ULCERATION [None]
  - ORAL DISORDER [None]
  - PARKINSON'S DISEASE [None]
  - URINARY TRACT INFECTION [None]
